FAERS Safety Report 16936729 (Version 1)
Quarter: 2019Q4

REPORT INFORMATION
  Report Type: Spontaneous
  Country: CZ (occurrence: CZ)
  Receive Date: 20191018
  Receipt Date: 20191018
  Transmission Date: 20200122
  Serious: Yes (Life-Threatening)
  Sender: FDA-Public Use
  Company Number: CZ-SAMSUNG BIOEPIS-SB-2019-30181

PATIENT
  Age: 61 Year
  Sex: Male
  Weight: 126 kg

DRUGS (1)
  1. FLIXABI [Suspect]
     Active Substance: INFLIXIMAB
     Indication: PSORIASIS
     Route: 042
     Dates: start: 20180925, end: 20190104

REACTIONS (1)
  - Acquired epidermolysis bullosa [Not Recovered/Not Resolved]

NARRATIVE: CASE EVENT DATE: 20190116
